FAERS Safety Report 23085029 (Version 1)
Quarter: 2023Q4

REPORT INFORMATION
  Report Type: Report from Study
  Country: CA (occurrence: CA)
  Receive Date: 20231019
  Receipt Date: 20231019
  Transmission Date: 20240110
  Serious: Yes (Hospitalization)
  Sender: FDA-Public Use
  Company Number: CA-JNJFOC-20230807003

PATIENT
  Age: 70 Year
  Sex: Female

DRUGS (1)
  1. SIMPONI [Suspect]
     Active Substance: GOLIMUMAB
     Indication: Psoriatic arthropathy
     Route: 058
     Dates: start: 20130616

REACTIONS (7)
  - Bronchitis [Unknown]
  - Pneumonia [Recovering/Resolving]
  - Ear infection [Unknown]
  - COVID-19 [Unknown]
  - Eczema [Unknown]
  - Adverse drug reaction [Unknown]
  - Erythema [Unknown]

NARRATIVE: CASE EVENT DATE: 20230101
